FAERS Safety Report 5921102-4 (Version None)
Quarter: 2008Q4

REPORT INFORMATION
  Report Type: 
  Country: None (occurrence: None)
  Receive Date: 20081016
  Receipt Date: 20081002
  Transmission Date: 20090506
  Serious: Yes (Disabling, Other)
  Sender: FDA-Public Use
  Company Number: US-PURDUE-USA_2007_0030766

PATIENT
  Sex: Female

DRUGS (7)
  1. OXYCONTIN [Suspect]
     Indication: PAIN
     Dosage: 10 MG, BID
  2. DILAUDID [Concomitant]
     Dosage: 2 MG, PRN
     Route: 030
  3. VICODIN [Concomitant]
     Dosage: 1 TABLET, DAILY
  4. CELEXA [Concomitant]
     Dosage: 60 MG, UNK
  5. INDOCIN                            /00003801/ [Concomitant]
     Dosage: 10 MG, TID
  6. KLONOPIN [Concomitant]
     Dosage: 1 MG, SEE TEXT
  7. TRAZODONE HCL [Concomitant]
     Dosage: 100 MG, UNK

REACTIONS (12)
  - ANHEDONIA [None]
  - ANORECTAL DISORDER [None]
  - BREAKTHROUGH PAIN [None]
  - CONSTIPATION [None]
  - DISABILITY [None]
  - DRUG INEFFECTIVE [None]
  - DYSURIA [None]
  - HYPOTONIC URINARY BLADDER [None]
  - INJURY [None]
  - INTENTIONAL DRUG MISUSE [None]
  - PAIN [None]
  - RESIDUAL URINE [None]
